FAERS Safety Report 8106447-4 (Version None)
Quarter: 2012Q1

REPORT INFORMATION
  Report Type: 
  Country: None (occurrence: None)
  Receive Date: 20120202
  Receipt Date: 20120120
  Transmission Date: 20120608
  Serious: Yes (Hospitalization)
  Sender: FDA-Public Use
  Company Number: GR-SANOFI-AVENTIS-2012SA004577

PATIENT
  Sex: Female

DRUGS (2)
  1. LANTUS [Suspect]
     Route: 065
  2. SOLOSTAR [Suspect]

REACTIONS (1)
  - MUSCULOSKELETAL PAIN [None]
